FAERS Safety Report 13042669 (Version 3)
Quarter: 2017Q1

REPORT INFORMATION
  Report Type: Spontaneous
  Country: US (occurrence: US)
  Receive Date: 20161219
  Receipt Date: 20170117
  Transmission Date: 20170428
  Serious: Yes (Other)
  Sender: FDA-Public Use
  Company Number: US-PFIZER INC-2016582514

PATIENT
  Age: 53 Year
  Sex: Male

DRUGS (11)
  1. PREDNISONE. [Suspect]
     Active Substance: PREDNISONE
     Indication: OPTIC NEURITIS
     Dosage: 40 MG, DAILY
  2. PREDNISONE. [Suspect]
     Active Substance: PREDNISONE
     Dosage: 80 MG, DAILY
  3. PREDNISONE. [Suspect]
     Active Substance: PREDNISONE
     Dosage: 20 MG, UNK
  4. METHYLPREDNISOLONE SODIUM SUCCINATE. [Suspect]
     Active Substance: METHYLPREDNISOLONE SODIUM SUCCINATE
     Indication: OPTIC NEURITIS
     Dosage: 1 G, DAILY
     Route: 042
  5. PREDNISONE. [Suspect]
     Active Substance: PREDNISONE
     Dosage: AN INCREASED PREDNISONE DOSE
  6. ENOXAPARIN [Concomitant]
     Active Substance: ENOXAPARIN
     Indication: ANTICOAGULANT THERAPY
     Dosage: UNK
  7. MYCOPHENOLATE MOFETIL. [Concomitant]
     Active Substance: MYCOPHENOLATE MOFETIL
     Indication: OPTIC NEURITIS
     Dosage: 1000 MG, 2X/DAY
  8. METHYLPREDNISOLONE SODIUM SUCCINATE. [Suspect]
     Active Substance: METHYLPREDNISOLONE SODIUM SUCCINATE
     Dosage: UNK
     Route: 042
  9. PREDNISONE. [Suspect]
     Active Substance: PREDNISONE
     Dosage: 100 MG DAILY
  10. METHYLPREDNISOLONE SODIUM SUCCINATE. [Suspect]
     Active Substance: METHYLPREDNISOLONE SODIUM SUCCINATE
     Dosage: 250 MG EVERY SIX HOURS
     Route: 042
  11. PREDNISONE. [Suspect]
     Active Substance: PREDNISONE
     Indication: HYPOPHYSITIS
     Dosage: 1 MG/KG/DAY, DAILY

REACTIONS (3)
  - Asthenia [Unknown]
  - Myopathy [Unknown]
  - Catatonia [Unknown]
